FAERS Safety Report 8963807 (Version 2)
Quarter: 2013Q1

REPORT INFORMATION
  Report Type: Spontaneous
  Country: US (occurrence: US)
  Receive Date: 20121214
  Receipt Date: 20130109
  Transmission Date: 20140127
  Serious: Yes (Other)
  Sender: FDA-Public Use
  Company Number: PHEH2012US024427

PATIENT
  Age: 62 Year
  Sex: Male

DRUGS (3)
  1. DIOVAN [Suspect]
     Indication: BLOOD PRESSURE ABNORMAL
     Dosage: UNK (EVERY OTHER DAY ABOUT A YEAR AGO)
     Route: 048
  2. DIOVAN [Suspect]
     Dosage: UNK (AS PRESCRIBED)
     Route: 048
  3. SINGULAIR [Concomitant]

REACTIONS (1)
  - Amyotrophic lateral sclerosis [Unknown]
